FAERS Safety Report 10466393 (Version 2)
Quarter: 2014Q4

REPORT INFORMATION
  Report Type: Spontaneous
  Country: JP (occurrence: None)
  Receive Date: 20140918
  Receipt Date: 20141029
  Transmission Date: 20150528
  Serious: Yes (Death, Life-Threatening, Hospitalization)
  Sender: FDA-Public Use
  Company Number: 2014MPI00857

PATIENT
  Age: 37 Year
  Sex: Male
  Weight: 81.1 kg

DRUGS (2)
  1. ADCETRIS [Suspect]
     Active Substance: BRENTUXIMAB VEDOTIN
     Indication: HODGKIN^S DISEASE
     Route: 041
     Dates: start: 20140630
  2. ANTIHISTAMINES [Concomitant]
     Active Substance: ANTIHISTAMINES NOS

REACTIONS (5)
  - Neutropenia [None]
  - Platelet count decreased [None]
  - Anaemia [None]
  - Fungal infection [None]
  - Infusion related reaction [None]

NARRATIVE: CASE EVENT DATE: 20140630
